FAERS Safety Report 8966174 (Version 2)
Quarter: 2013Q1

REPORT INFORMATION
  Report Type: Spontaneous
  Country: US (occurrence: None)
  Receive Date: 20121204
  Receipt Date: 20121211
  Transmission Date: 20140127
  Serious: Yes (Death, Hospitalization)
  Sender: FDA-Public Use
  Company Number: 142401

PATIENT
  Age: 57 Year
  Sex: Male
  Weight: 62 kg

DRUGS (1)
  1. LEUCOVORIN CALCIUM [Suspect]
     Indication: COLORECTAL CANCER METASTATIC
     Dosage: DAY ONE EVERY 14 DAYS
     Dates: start: 20120229, end: 20120801

REACTIONS (11)
  - Hip fracture [None]
  - Fall [None]
  - Disease progression [None]
  - Haemoglobin decreased [None]
  - Haematocrit decreased [None]
  - Blood albumin decreased [None]
  - Blood creatinine decreased [None]
  - Gamma-glutamyltransferase increased [None]
  - Platelet count increased [None]
  - Monocyte count decreased [None]
  - White blood cell count increased [None]
